FAERS Safety Report 4316105-X (Version None)
Quarter: 2004Q1

REPORT INFORMATION
  Report Type: 
  Country: None (occurrence: None)
  Receive Date: 20040312
  Receipt Date: 20040302
  Transmission Date: 20041129
  Serious: Yes (Other)
  Sender: FDA-Public Use
  Company Number: 200410847FR

PATIENT
  Age: 60 Year
  Sex: Female

DRUGS (2)
  1. BIRODOGYL [Suspect]
     Indication: PERIODONTITIS
     Dosage: DOSE: 1-0-1; DOSE UNIT: UNITS
     Route: 048
     Dates: start: 20040106, end: 20040125
  2. IMUDON [Concomitant]
     Indication: PERIODONTITIS
     Route: 048
     Dates: start: 20040106

REACTIONS (1)
  - LEUKAEMIA [None]
